FAERS Safety Report 7477137-6 (Version None)
Quarter: 2011Q2

REPORT INFORMATION
  Report Type: 
  Country: None (occurrence: None)
  Receive Date: 20110512
  Receipt Date: 20110429
  Transmission Date: 20111010
  Serious: Yes (Other)
  Sender: FDA-Public Use
  Company Number: DE-MYLANLABS-2011S1008963

PATIENT
  Sex: Female
  Weight: 66 kg

DRUGS (6)
  1. PAROXETINE HCL [Suspect]
     Indication: ANXIETY DISORDER
     Dosage: 20 [MG/D ]
     Route: 048
  2. BUSCOPAN PLUS [Suspect]
     Indication: PAIN
     Dosage: 1000 [MG/D ] / 20 [MG/D ]
     Route: 048
  3. NASIC [Concomitant]
     Indication: SEASONAL ALLERGY
     Dosage: 1 [1X/D ] - 5-6 GESTR WEEK
     Route: 045
  4. CETIRIZINE HCL [Concomitant]
     Indication: SEASONAL ALLERGY
     Dosage: 10 [MG/D ] -  5 -6 GESTIONAL WEEK
     Route: 048
  5. LORAZEPAM [Suspect]
     Indication: SLEEP DISORDER
     Dosage: 1,25 [MG/D ]
     Route: 048
  6. TARDYFERON FOLSAURE [Concomitant]
     Indication: PROPHYLAXIS OF NEURAL TUBE DEFECT
     Dosage: 0.4 [MG/D ]  - 0-7 GEST WEEK
     Route: 048

REACTIONS (2)
  - ABORTION SPONTANEOUS [None]
  - DRUG EXPOSURE DURING PREGNANCY [None]
